FAERS Safety Report 8390440-0 (Version None)
Quarter: 2012Q2

REPORT INFORMATION
  Report Type: 
  Country: None (occurrence: None)
  Receive Date: 20120516
  Receipt Date: 20120504
  Transmission Date: 20120825
  Serious: Yes (Other)
  Sender: FDA-Public Use
  Company Number: 2012SP016703

PATIENT
  Age: 67 Year
  Sex: Female
  Weight: 130 kg

DRUGS (8)
  1. ZOLPIDEM [Concomitant]
  2. RIBAVIRIN [Suspect]
     Indication: HEPATITIS C
     Dosage: 1000 MG;QD;PO
     Route: 048
     Dates: start: 20111018
  3. GS-9451 [Concomitant]
     Indication: HEPATITIS C
     Dosage: 200 MG;QD;PO
     Route: 048
     Dates: start: 20111018
  4. GS-5885 [Suspect]
     Indication: HEPATITIS C
     Dosage: 30 MG;QD;PO
     Route: 048
     Dates: start: 20111018
  5. DILTIAZEM [Concomitant]
  6. FLUTICASONE PROPIOINATE [Concomitant]
  7. TEGOBUVIR [Suspect]
     Indication: HEPATITIS C
     Dosage: 30 MG;Q12H-PO
     Route: 048
     Dates: start: 20111018
  8. ALBUTEROL [Concomitant]

REACTIONS (5)
  - VITREOUS FLOATERS [None]
  - UVEITIS [None]
  - SARCOIDOSIS [None]
  - IRITIS [None]
  - VITRITIS [None]
